FAERS Safety Report 5863942-6 (Version None)
Quarter: 2008Q3

REPORT INFORMATION
  Report Type: 
  Country: None (occurrence: None)
  Receive Date: 20080829
  Receipt Date: 20080821
  Transmission Date: 20090109
  Serious: No
  Sender: FDA-Public Use
  Company Number: GB-BRISTOL-MYERS SQUIBB COMPANY-14263750

PATIENT
  Age: 60 Year
  Sex: Male

DRUGS (2)
  1. LYSODREN [Suspect]
     Indication: ADRENAL CARCINOMA
     Dosage: 06AUG08,5G/DAY.
     Route: 048
     Dates: start: 20080508
  2. THYROXINE [Concomitant]
     Dosage: INCREASED TO 100MCG/DAY.

REACTIONS (9)
  - ADRENAL INSUFFICIENCY [None]
  - FATIGUE [None]
  - HYPOTHYROIDISM [None]
  - MEMORY IMPAIRMENT [None]
  - NEUTROPHIL COUNT DECREASED [None]
  - RASH [None]
  - RED BLOOD CELL COUNT DECREASED [None]
  - SOMNOLENCE [None]
  - WHITE BLOOD CELL COUNT DECREASED [None]
